FAERS Safety Report 16170384 (Version 1)
Quarter: 2019Q2

REPORT INFORMATION
  Report Type: Spontaneous
  Country: GR (occurrence: GR)
  Receive Date: 20190408
  Receipt Date: 20190408
  Transmission Date: 20190711
  Serious: Yes (Other)
  Sender: FDA-Public Use
  Company Number: GR-TEVA-2019-GR-1034911

PATIENT
  Age: 73 Year
  Sex: Male

DRUGS (2)
  1. PACLITAXEL. [Suspect]
     Active Substance: PACLITAXEL
     Indication: PROSTATE CANCER STAGE IV
     Dosage: HAD BEEN RECEIVING PACLITAXEL EVERY WEEK OVER THE PAST 12 WEEKS
     Route: 065
  2. DEXAMETHASONE. [Concomitant]
     Active Substance: DEXAMETHASONE
     Indication: PROSTATE CANCER STAGE IV
     Dosage: HAD BEEN RECEIVING DEXAMETHASONE EVERY WEEK OVER THE PAST 12 WEEKS
     Route: 065

REACTIONS (1)
  - Cystoid macular oedema [Recovered/Resolved]
